FAERS Safety Report 5341129-3 (Version None)
Quarter: 2007Q2

REPORT INFORMATION
  Report Type: 
  Country: None (occurrence: None)
  Receive Date: 20070530
  Receipt Date: 20070518
  Transmission Date: 20071010
  Serious: Yes (Hospitalization)
  Sender: FDA-Public Use
  Company Number: 2007BI009044

PATIENT
  Age: 53 Year
  Sex: Female

DRUGS (8)
  1. AVONEX [Suspect]
     Indication: MULTIPLE SCLEROSIS
     Dosage: 30 UG; QW; IM
     Route: 030
     Dates: start: 20040330, end: 20060101
  2. AVONEX [Suspect]
     Indication: MULTIPLE SCLEROSIS
     Dosage: IM
     Route: 030
     Dates: start: 20040101, end: 20060101
  3. AVONEX [Suspect]
     Indication: MULTIPLE SCLEROSIS
     Dosage: IM
     Route: 030
     Dates: start: 20060101
  4. PREDNISONE TAB [Concomitant]
  5. NEURONTIN [Concomitant]
  6. TRAMADOL HCL [Concomitant]
  7. FLEXERIL [Concomitant]
  8. NAPROSYN [Concomitant]

REACTIONS (2)
  - ABDOMINAL STRANGULATED HERNIA [None]
  - GASTROINTESTINAL DISORDER [None]
